FAERS Safety Report 8478497-X (Version None)
Quarter: 2012Q2

REPORT INFORMATION
  Report Type: 
  Country: None (occurrence: None)
  Receive Date: 20120629
  Receipt Date: 20120625
  Transmission Date: 20120825
  Serious: Yes (Life-Threatening, Hospitalization)
  Sender: FDA-Public Use
  Company Number: DE-ASTELLAS-2012EU004549

PATIENT
  Age: 63 Year
  Sex: Male
  Weight: 88 kg

DRUGS (11)
  1. AMIODARON                          /00133101/ [Concomitant]
     Dosage: UNK
     Route: 065
     Dates: start: 20110922
  2. EFA [Suspect]
  3. MICAFUNGIN INJECTION [Suspect]
     Indication: SYSTEMIC CANDIDA
     Dosage: 100 MG, UID/QD
     Route: 042
     Dates: start: 20110929
  4. HEPARIN [Concomitant]
     Dosage: UNK
     Route: 065
     Dates: start: 20110921
  5. PANTOPRAZOLE [Concomitant]
     Dosage: UNK
     Route: 065
     Dates: start: 20110922
  6. AMPHOTERICIN B [Concomitant]
     Dosage: UNK
     Route: 065
     Dates: start: 20110928
  7. MOXIFLOXACIN [Concomitant]
     Dosage: UNK
     Route: 065
     Dates: start: 20110921
  8. ACC                                /00082801/ [Concomitant]
     Dosage: UNK
     Route: 065
     Dates: start: 20110922
  9. MEROPENEM [Concomitant]
     Dosage: UNK
     Route: 065
     Dates: start: 20110921
  10. IPRATROPIUM BROMIDE [Concomitant]
     Dosage: UNK
     Route: 065
     Dates: start: 20110922
  11. TORSEMIDE [Concomitant]
     Dosage: UNK
     Route: 065
     Dates: start: 20110921

REACTIONS (1)
  - INFECTION [None]
